FAERS Safety Report 11480813 (Version 1)
Quarter: 2015Q3

REPORT INFORMATION
  Report Type: Spontaneous
  Country: US (occurrence: US)
  Receive Date: 20150909
  Receipt Date: 20150909
  Transmission Date: 20151125
  Serious: No
  Sender: FDA-Public Use
  Company Number: US-JAZZ-2014-US-016362

PATIENT
  Sex: Female
  Weight: 58.95 kg

DRUGS (5)
  1. XYREM [Suspect]
     Active Substance: SODIUM OXYBATE
     Indication: NARCOLEPSY
     Dosage: 3.75 G, BID
     Route: 048
  2. METFORMIN [Concomitant]
     Active Substance: METFORMIN HYDROCHLORIDE
     Indication: DIABETES MELLITUS
     Dosage: UNK
  3. VENLAFAXINE [Concomitant]
     Active Substance: VENLAFAXINE HYDROCHLORIDE
     Indication: ANXIETY
     Dosage: UNK
  4. BYSTOLIC [Concomitant]
     Active Substance: NEBIVOLOL HYDROCHLORIDE
     Indication: TACHYCARDIA
     Dosage: UNK
  5. MODAFINIL. [Concomitant]
     Active Substance: MODAFINIL
     Indication: NARCOLEPSY
     Dosage: UNK

REACTIONS (8)
  - Pleurisy [Recovered/Resolved]
  - Weight decreased [Not Recovered/Not Resolved]
  - C-reactive protein increased [Unknown]
  - Arthritis [Not Recovered/Not Resolved]
  - Haematochezia [Unknown]
  - Gastrointestinal disorder [Unknown]
  - Inflammation [Unknown]
  - Costochondritis [Recovered/Resolved]

NARRATIVE: CASE EVENT DATE: 2014
